FAERS Safety Report 5357685-5 (Version None)
Quarter: 2007Q2

REPORT INFORMATION
  Report Type: 
  Country: None (occurrence: None)
  Receive Date: 20070614
  Receipt Date: 20070608
  Transmission Date: 20071010
  Serious: Yes (Other)
  Sender: FDA-Public Use
  Company Number: HQWYE480127NOV06

PATIENT
  Sex: Male

DRUGS (1)
  1. PANTOPRAZOLE SODIUM [Suspect]
     Indication: GASTROOESOPHAGEAL REFLUX DISEASE
     Route: 048
     Dates: start: 20061001, end: 20061101

REACTIONS (1)
  - SKIN EXFOLIATION [None]
